FAERS Safety Report 9196158 (Version 1)
Quarter: 2013Q1

REPORT INFORMATION
  Report Type: Spontaneous
  Country: US (occurrence: None)
  Receive Date: 20120703
  Receipt Date: 20120703
  Transmission Date: 20140127
  Serious: No
  Sender: FDA-Public Use
  Company Number: PHEH2011US013145

PATIENT
  Age: 32 Year
  Sex: Female
  Weight: 49.4 kg

DRUGS (9)
  1. GILENYA (FTY) CAPSULE, 0.5MG [Suspect]
     Indication: MULTIPLE SCLEROSIS
     Route: 048
     Dates: start: 20110629
  2. ROTEC (CARBINOXAMINE, PSEUDOEPHEDRINE) [Concomitant]
  3. ATIVAN (LORAZEPAM) [Concomitant]
  4. TRAZODONE (TRAZODONE) [Concomitant]
  5. ZANAFLEX (TIZANIDINE HYDROCHLORIDE) [Concomitant]
  6. FAMPRIDINE (FAMPRIDINE) [Concomitant]
  7. EFFEXOR (VENLAFAXINE HYDROCHLORIDE) UNKNOWN [Concomitant]
  8. GABAPENTIN (GABAPENTIN) [Concomitant]
  9. TIZANIDINE [Suspect]

REACTIONS (1)
  - Balance disorder [None]
